FAERS Safety Report 10927190 (Version 1)
Quarter: 2015Q1

REPORT INFORMATION
  Report Type: Spontaneous
  Country: US (occurrence: None)
  Receive Date: 20150316
  Receipt Date: 20150316
  Transmission Date: 20150721
  Serious: Yes (Life-Threatening, Hospitalization, Other)
  Sender: FDA-Public Use
  Company Number: ADR-2015-00508

PATIENT
  Age: 69 Year
  Sex: Male

DRUGS (1)
  1. BACLOFEN INTRATHECAL [Suspect]
     Active Substance: BACLOFEN
     Indication: MUSCLE SPASTICITY

REACTIONS (10)
  - Stiff person syndrome [None]
  - General physical health deterioration [None]
  - Blood glucose decreased [None]
  - Heart rate increased [None]
  - Pneumonia [None]
  - Confusional state [None]
  - Apparent death [None]
  - Device kink [None]
  - Drug withdrawal syndrome [None]
  - Sepsis [None]

NARRATIVE: CASE EVENT DATE: 20150101
